FAERS Safety Report 12799490 (Version 2)
Quarter: 2016Q4

REPORT INFORMATION
  Report Type: Spontaneous
  Country: US (occurrence: US)
  Receive Date: 20160930
  Receipt Date: 20161013
  Transmission Date: 20170207
  Serious: Yes (Other)
  Sender: FDA-Public Use
  Company Number: US-BAYER-2016-189204

PATIENT
  Age: 48 Year
  Sex: Male

DRUGS (1)
  1. MAGNEVIST [Suspect]
     Active Substance: GADOPENTETATE DIMEGLUMINE
     Dosage: 16.5 ML, ONCE
     Dates: start: 20160803, end: 20160803

REACTIONS (4)
  - Dizziness [None]
  - Lethargy [None]
  - Dizziness [None]
  - Blood pressure systolic decreased [None]

NARRATIVE: CASE EVENT DATE: 20160803
